FAERS Safety Report 7102629-9 (Version None)
Quarter: 2010Q4

REPORT INFORMATION
  Report Type: 
  Country: None (occurrence: None)
  Receive Date: 20101115
  Receipt Date: 20101110
  Transmission Date: 20110411
  Serious: Yes (Hospitalization)
  Sender: FDA-Public Use
  Company Number: B0683738A

PATIENT
  Sex: Male

DRUGS (7)
  1. AUGMENTIN '125' [Suspect]
     Indication: SIGMOIDITIS
     Dosage: 2G PER DAY
     Route: 048
     Dates: start: 20101005, end: 20101008
  2. INFLUVAC [Suspect]
     Indication: PROPHYLAXIS
     Route: 065
     Dates: start: 20100929, end: 20100929
  3. XATRAL [Concomitant]
     Dosage: 10MG PER DAY
     Route: 048
  4. GAVISCON [Concomitant]
     Dosage: 3UNIT PER DAY
     Route: 048
  5. DICETEL [Concomitant]
     Dosage: 200MG PER DAY
     Route: 048
  6. FORLAX [Concomitant]
     Dosage: 1UNIT PER DAY
     Route: 048
  7. ALPRAZOLAM [Concomitant]
     Dosage: 1.5UNIT PER DAY
     Route: 048

REACTIONS (2)
  - PYREXIA [None]
  - RENAL FAILURE ACUTE [None]
